FAERS Safety Report 20176793 (Version 2)
Quarter: 2022Q1

REPORT INFORMATION
  Report Type: Spontaneous
  Country: US (occurrence: US)
  Receive Date: 20211213
  Receipt Date: 20220111
  Transmission Date: 20220424
  Serious: No
  Sender: FDA-Public Use
  Company Number: US-BAYER-2021A266674

PATIENT
  Age: 66 Year
  Sex: Female

DRUGS (1)
  1. CLIMARA [Suspect]
     Active Substance: ESTRADIOL
     Dosage: UNK
     Route: 062
     Dates: start: 20211205

REACTIONS (5)
  - Hot flush [None]
  - Headache [None]
  - Drug ineffective [None]
  - Device physical property issue [None]
  - Device adhesion issue [None]

NARRATIVE: CASE EVENT DATE: 20211205
